FAERS Safety Report 9846635 (Version 1)
Quarter: 2014Q1

REPORT INFORMATION
  Report Type: Spontaneous
  Country: JP (occurrence: JP)
  Receive Date: 20140127
  Receipt Date: 20140127
  Transmission Date: 20141002
  Serious: Yes (Hospitalization)
  Sender: FDA-Public Use
  Company Number: JP-GLAXOSMITHKLINE-B0962863A

PATIENT
  Age: 95 Year
  Sex: Female

DRUGS (5)
  1. VALTREX [Suspect]
     Indication: HERPES ZOSTER
     Dosage: 500MG THREE TIMES PER DAY
     Route: 048
     Dates: start: 20140114, end: 20140117
  2. AMARYL [Concomitant]
     Dosage: .5MG PER DAY
     Route: 048
  3. FUROSEMIDE [Concomitant]
     Dosage: 40MG PER DAY
     Route: 048
  4. ARGAMATE [Concomitant]
     Dosage: 1IUAX THREE TIMES PER DAY
     Route: 048
  5. UNKNOWN DRUG [Concomitant]
     Route: 048

REACTIONS (2)
  - Toxic encephalopathy [Recovering/Resolving]
  - Loss of consciousness [Unknown]
